FAERS Safety Report 12651308 (Version 1)
Quarter: 2016Q3

REPORT INFORMATION
  Report Type: Spontaneous
  Country: US (occurrence: US)
  Receive Date: 20160815
  Receipt Date: 20160815
  Transmission Date: 20161109
  Serious: No
  Sender: FDA-Public Use
  Company Number: US-FRESENIUS KABI-FK201605400

PATIENT
  Age: 56 Year
  Sex: Male
  Weight: 118.2 kg

DRUGS (2)
  1. HEPARIN SODIUM INJECTION, USP [Suspect]
     Active Substance: HEPARIN SODIUM
     Indication: CORONARY ARTERY BYPASS
     Route: 065
     Dates: start: 20160804
  2. HEPARIN SODIUM INJECTION, USP [Suspect]
     Active Substance: HEPARIN SODIUM
     Route: 065
     Dates: start: 20160804

REACTIONS (1)
  - Therapeutic response decreased [Unknown]

NARRATIVE: CASE EVENT DATE: 20160804
